FAERS Safety Report 7745939-4 (Version None)
Quarter: 2011Q3

REPORT INFORMATION
  Report Type: 
  Country: None (occurrence: None)
  Receive Date: 20110913
  Receipt Date: 20110906
  Transmission Date: 20111222
  Serious: No
  Sender: FDA-Public Use
  Company Number: US-PFIZER INC-2011209441

PATIENT
  Sex: Male
  Weight: 86.168 kg

DRUGS (7)
  1. SUTENT [Suspect]
     Dosage: 25 MG, 1X/DAY
     Route: 048
  2. NEXIUM [Concomitant]
     Dosage: 20 MG, UNK
     Route: 048
  3. LEXAPRO [Concomitant]
     Dosage: 10 MG, UNK
     Route: 048
  4. NADOLOL [Concomitant]
     Dosage: 20 MG, UNK
     Route: 048
  5. XIFAXAN [Concomitant]
     Dosage: 550 MG, UNK
     Route: 048
  6. LACTULOSE [Concomitant]
     Dosage: 20 GM/30
  7. PERCOCET [Concomitant]
     Dosage: 10-325 MG
     Route: 048

REACTIONS (7)
  - DRY SKIN [None]
  - CONTUSION [None]
  - NAUSEA [None]
  - DIARRHOEA [None]
  - PRURITUS [None]
  - ERUCTATION [None]
  - SNEEZING [None]
